FAERS Safety Report 6272780-4 (Version None)
Quarter: 2009Q3

REPORT INFORMATION
  Report Type: 
  Country: None (occurrence: None)
  Receive Date: 20090716
  Receipt Date: 20090716
  Transmission Date: 20100115
  Serious: Yes (Death)
  Sender: FDA-Public Use
  Company Number: None

PATIENT
  Age: 31 Year
  Sex: Female
  Weight: 66 kg

DRUGS (4)
  1. COVIRO LS 30 (LAMIVUDINE / STAVUDINE) [Suspect]
     Indication: HIV INFECTION
     Dosage: UNSPECIFIED QD ORAL
     Route: 048
     Dates: start: 20080626, end: 20090612
  2. EFAVIRENZ [Suspect]
     Indication: HIV INFECTION
     Dosage: 600MG QD ORAL
     Route: 048
     Dates: start: 20080626, end: 20090612
  3. COTRIM [Concomitant]
  4. FLUCONAZOLE [Concomitant]

REACTIONS (1)
  - LACTIC ACIDOSIS [None]
